FAERS Safety Report 23324624 (Version 1)
Quarter: 2023Q4

REPORT INFORMATION
  Report Type: Spontaneous
  Country: GB (occurrence: GB)
  Receive Date: 20231221
  Receipt Date: 20231221
  Transmission Date: 20240110
  Serious: Yes (Other)
  Sender: FDA-Public Use
  Company Number: GB-MHRA-MED-202312090054238670-MVKGY

PATIENT
  Age: 20 Year
  Sex: Female
  Weight: 60 kg

DRUGS (1)
  1. DULOXETINE [Suspect]
     Active Substance: DULOXETINE
     Indication: Product used for unknown indication
     Dosage: 20 MILLIGRAM
     Route: 065

REACTIONS (9)
  - Neurogenic bladder [Not Recovered/Not Resolved]
  - Retching [Not Recovered/Not Resolved]
  - Glassy eyes [Not Recovered/Not Resolved]
  - Genital pain [Not Recovered/Not Resolved]
  - Fatigue [Not Recovered/Not Resolved]
  - Glossodynia [Not Recovered/Not Resolved]
  - Uterine spasm [Recovering/Resolving]
  - Bladder pain [Recovering/Resolving]
  - Decreased appetite [Recovered/Resolved with Sequelae]
